FAERS Safety Report 5915418-5 (Version None)
Quarter: 2008Q4

REPORT INFORMATION
  Report Type: 
  Country: None (occurrence: None)
  Receive Date: 20081009
  Receipt Date: 20081009
  Transmission Date: 20090506
  Serious: Yes (Other)
  Sender: FDA-Public Use
  Company Number: None

PATIENT
  Age: 63 Year
  Sex: Female
  Weight: 60.782 kg

DRUGS (1)
  1. SIMVASTATIN TABS 40MG TEVA [Suspect]
     Indication: BLOOD CHOLESTEROL INCREASED
     Dosage: 1 TAB AT BEDTIME ONE DAY PO
     Route: 048
     Dates: start: 20080927, end: 20081008

REACTIONS (8)
  - DYSPEPSIA [None]
  - FATIGUE [None]
  - FEELING ABNORMAL [None]
  - HEADACHE [None]
  - MALAISE [None]
  - TINNITUS [None]
  - VERTIGO [None]
  - WRONG TECHNIQUE IN DRUG USAGE PROCESS [None]
